FAERS Safety Report 9457117 (Version 2)
Quarter: 2014Q2

REPORT INFORMATION
  Report Type: Spontaneous
  Country: US (occurrence: US)
  Receive Date: 20130814
  Receipt Date: 20140604
  Transmission Date: 20141212
  Serious: No
  Sender: FDA-Public Use
  Company Number: US-B.I. PHARMACEUTICALS,INC./RIDGEFIELD-2013-BI-24094BP

PATIENT
  Age: 66 Year
  Sex: Male

DRUGS (7)
  1. COMBIVENT [Suspect]
     Indication: CHRONIC OBSTRUCTIVE PULMONARY DISEASE
     Dosage: STRENGTH: 20 MCG / 100 MCG; DAILY DOSE: 180MCG/600 MCG
     Route: 055
     Dates: start: 201305, end: 201305
  2. COMBIVENT [Suspect]
     Dosage: STRENGTH: 20 MCG / 100 MCG; DAILY DOSE: 240MCG/1200 MCG
     Route: 055
     Dates: start: 201305
  3. COMBIVENT [Suspect]
     Dosage: STRENGTH:20 MCG / 100MCG; DAILY DOSE: 160 MCG /800 MCG
     Route: 055
     Dates: start: 2013
  4. SYMBICORT [Concomitant]
     Route: 055
  5. PROAIR [Concomitant]
     Route: 055
  6. DUONEB [Concomitant]
     Route: 055
  7. COMBIVENT INHALATION AEROSOL [Concomitant]
     Route: 055
     Dates: end: 201305

REACTIONS (4)
  - Drug effect decreased [Recovered/Resolved]
  - Drug prescribing error [Not Recovered/Not Resolved]
  - Medication error [Not Recovered/Not Resolved]
  - Drug ineffective [Unknown]
